FAERS Safety Report 9801267 (Version 1)
Quarter: 2014Q1

REPORT INFORMATION
  Report Type: Spontaneous
  Country: US (occurrence: US)
  Receive Date: 20140107
  Receipt Date: 20140107
  Transmission Date: 20141002
  Serious: No
  Sender: FDA-Public Use
  Company Number: US-GLAXOSMITHKLINE-A1041195A

PATIENT
  Sex: Female

DRUGS (3)
  1. BENLYSTA [Suspect]
     Indication: SYSTEMIC LUPUS ERYTHEMATOSUS
     Route: 042
     Dates: start: 2013
  2. SOLU-MEDROL [Suspect]
     Indication: PREMEDICATION
     Dosage: 40MG SINGLE DOSE
     Dates: start: 20130826, end: 20130826
  3. NO CONCURRENT MEDICATION [Concomitant]

REACTIONS (2)
  - Headache [Unknown]
  - Chest pain [Unknown]
